FAERS Safety Report 8437204-7 (Version None)
Quarter: 2012Q2

REPORT INFORMATION
  Report Type: 
  Country: None (occurrence: None)
  Receive Date: 20120614
  Receipt Date: 20120313
  Transmission Date: 20120825
  Serious: No
  Sender: FDA-Public Use
  Company Number: US-AMGEN-USASP2011057393

PATIENT
  Age: 70 Year
  Sex: Female

DRUGS (7)
  1. OMEPRAZOLE [Concomitant]
  2. PRAVASTATIN [Concomitant]
  3. NORTRIPTYLINE HYDROCHLORIDE [Concomitant]
  4. NIACIN [Concomitant]
  5. LISINOPRIL [Concomitant]
  6. PROLIA [Suspect]
     Indication: OSTEOPOROSIS
     Dosage: 60 MG, Q6MO
     Route: 058
     Dates: start: 20110524, end: 20110524
  7. CARBIDOPA LEVODOPA TEVA [Concomitant]

REACTIONS (6)
  - MUSCLE SPASMS [None]
  - NECK PAIN [None]
  - PAIN IN JAW [None]
  - PAIN IN EXTREMITY [None]
  - HEADACHE [None]
  - MUSCULAR WEAKNESS [None]
